FAERS Safety Report 4806273-5 (Version None)
Quarter: 2005Q4

REPORT INFORMATION
  Report Type: 
  Country: None (occurrence: None)
  Receive Date: 20051021
  Receipt Date: 20050908
  Transmission Date: 20060501
  Serious: Yes (Disabling, Other)
  Sender: FDA-Public Use
  Company Number: US-MERCK-0509USA01018

PATIENT
  Age: 62 Year
  Sex: Female

DRUGS (6)
  1. VYTORIN [Suspect]
     Indication: LOW DENSITY LIPOPROTEIN INCREASED
     Route: 048
     Dates: start: 20050104, end: 20050510
  2. DIOVAN [Concomitant]
     Indication: METABOLIC SYNDROME
     Route: 048
     Dates: start: 20030101
  3. ZETIA [Concomitant]
     Route: 048
     Dates: start: 20030101
  4. PLAVIX [Concomitant]
     Route: 048
     Dates: start: 20030101
  5. ASPIRIN [Concomitant]
     Route: 048
     Dates: start: 20030101
  6. [THERAPY UNSPECIFIED] [Concomitant]
     Route: 065

REACTIONS (3)
  - DIPLEGIA [None]
  - PAIN [None]
  - PAIN IN EXTREMITY [None]
